FAERS Safety Report 6601946-6 (Version None)
Quarter: 2010Q1

REPORT INFORMATION
  Report Type: 
  Country: None (occurrence: None)
  Receive Date: 20100225
  Receipt Date: 20100217
  Transmission Date: 20100710
  Serious: Yes (Other)
  Sender: FDA-Public Use
  Company Number: US-JNJFOC-20090902458

PATIENT
  Sex: Male
  Weight: 86.18 kg

DRUGS (4)
  1. INVEGA [Suspect]
     Indication: BIPOLAR DISORDER
     Route: 048
  2. INVEGA [Suspect]
     Route: 048
  3. SEROQUEL [Concomitant]
     Indication: BIPOLAR DISORDER
  4. LAMICTAL CD [Concomitant]
     Indication: BIPOLAR DISORDER

REACTIONS (2)
  - BLOOD PROLACTIN ABNORMAL [None]
  - GALACTORRHOEA [None]
